FAERS Safety Report 16762345 (Version 3)
Quarter: 2020Q2

REPORT INFORMATION
  Report Type: Report from Study
  Country: CA (occurrence: CA)
  Receive Date: 20190831
  Receipt Date: 20200410
  Transmission Date: 20200713
  Serious: Yes (Other)
  Sender: FDA-Public Use
  Company Number: CA-BRISTOL-MYERS SQUIBB COMPANY-BMS-2019-082656

PATIENT
  Age: 85 Year
  Sex: Male

DRUGS (6)
  1. DASATINIB. [Suspect]
     Active Substance: DASATINIB
     Indication: CHRONIC MYELOID LEUKAEMIA
     Route: 065
  2. GLEEVEC [Suspect]
     Active Substance: IMATINIB MESYLATE
     Indication: PRODUCT USED FOR UNKNOWN INDICATION
     Dosage: 400 MILLIGRAM,1EVERY1DAY
     Route: 048
  3. IMATINIB. [Suspect]
     Active Substance: IMATINIB MESYLATE
     Indication: CHRONIC MYELOID LEUKAEMIA
     Route: 065
  4. GLEEVEC [Suspect]
     Active Substance: IMATINIB MESYLATE
     Indication: CHRONIC MYELOID LEUKAEMIA
     Dosage: 200 MILLIGRAM, 1EVERY1DAY
     Route: 048
  5. GLEEVEC [Suspect]
     Active Substance: IMATINIB MESYLATE
     Indication: PRODUCT USED FOR UNKNOWN INDICATION
     Dosage: 300 MILLIGRAM,1EVERY1DAY
     Route: 048
  6. GLEEVEC [Suspect]
     Active Substance: IMATINIB MESYLATE
     Indication: PRODUCT USED FOR UNKNOWN INDICATION
     Dosage: 300 MILLIGRAM, 1 EVERY 1 DAYS
     Route: 065

REACTIONS (18)
  - Dyspnoea [Recovered/Resolved]
  - Influenza [Recovered/Resolved]
  - Weight increased [Recovered/Resolved]
  - Cytogenetic analysis abnormal [Recovered/Resolved]
  - Dizziness [Recovered/Resolved]
  - Rhinorrhoea [Recovered/Resolved]
  - Eye swelling [Recovered/Resolved]
  - Joint swelling [Recovered/Resolved]
  - Body temperature increased [Recovered/Resolved]
  - Oedema peripheral [Recovered/Resolved]
  - Periorbital oedema [Recovered/Resolved]
  - Vision blurred [Recovered/Resolved]
  - Lacrimation increased [Recovered/Resolved]
  - Nasopharyngitis [Recovered/Resolved]
  - Fluid retention [Recovered/Resolved]
  - Pulmonary oedema [Recovered/Resolved]
  - Drug hypersensitivity [Recovered/Resolved]
  - Sneezing [Recovered/Resolved]
